FAERS Safety Report 10376309 (Version 2)
Quarter: 2014Q3

REPORT INFORMATION
  Report Type: Spontaneous
  Country: IT (occurrence: IT)
  Receive Date: 20140811
  Receipt Date: 20140813
  Transmission Date: 20150326
  Serious: Yes (Hospitalization, Other)
  Sender: FDA-Public Use
  Company Number: IT-TEVA-499700ISR

PATIENT
  Age: 24 Year
  Sex: Female

DRUGS (1)
  1. ZOLPIDEM TARTRATE. [Suspect]
     Active Substance: ZOLPIDEM TARTRATE
     Indication: INSOMNIA
     Dosage: 300 MG TOTAL
     Route: 048
     Dates: start: 20130331, end: 20130331

REACTIONS (4)
  - Toxicity to various agents [Recovered/Resolved]
  - Drug abuse [Unknown]
  - Suicide attempt [Unknown]
  - Sopor [Recovered/Resolved]

NARRATIVE: CASE EVENT DATE: 20130331
